FAERS Safety Report 5718196-8 (Version None)
Quarter: 2008Q2

REPORT INFORMATION
  Report Type: 
  Country: None (occurrence: None)
  Receive Date: 20080425
  Receipt Date: 20080421
  Transmission Date: 20081010
  Serious: Yes (Hospitalization)
  Sender: FDA-Public Use
  Company Number: US-RB-000847-08

PATIENT
  Sex: Male

DRUGS (2)
  1. SUBOXONE [Suspect]
     Indication: DRUG DEPENDENCE
     Route: 060
     Dates: start: 20060401, end: 20080415
  2. XANAX [Concomitant]
     Indication: ANXIETY
     Route: 048

REACTIONS (4)
  - INSOMNIA [None]
  - LETHARGY [None]
  - ORCHITIS [None]
  - RESTLESSNESS [None]
